FAERS Safety Report 17878153 (Version 6)
Quarter: 2022Q1

REPORT INFORMATION
  Report Type: Report from Study
  Country: JP (occurrence: JP)
  Receive Date: 20200609
  Receipt Date: 20220317
  Transmission Date: 20220423
  Serious: Yes (Hospitalization, Other)
  Sender: FDA-Public Use
  Company Number: JP-ABBVIE-19S-087-2760913-00

PATIENT
  Age: 67 Year
  Sex: Female

DRUGS (29)
  1. CARBIDOPA\LEVODOPA [Suspect]
     Active Substance: CARBIDOPA\LEVODOPA
     Indication: Parkinson^s disease
     Dosage: MD: 8.0 ML CD: 2.5 ML/HR X 16 HRS
     Route: 050
     Dates: start: 20180419, end: 20180428
  2. CARBIDOPA\LEVODOPA [Suspect]
     Active Substance: CARBIDOPA\LEVODOPA
     Dosage: MD: 8.0 ML CD: 2.6 ML/HR X 16 HRS
     Route: 050
     Dates: start: 20180429, end: 20191219
  3. CARBIDOPA\LEVODOPA [Suspect]
     Active Substance: CARBIDOPA\LEVODOPA
     Dosage: MD: 8.0 ML?CD: 2.6 ML/HR X 16 HRS
     Route: 050
     Dates: start: 20191220, end: 20200214
  4. CARBIDOPA\LEVODOPA [Suspect]
     Active Substance: CARBIDOPA\LEVODOPA
     Dosage: MD: 8.0 ML?CD: 2.6 ML/HR X 16 HRS
     Route: 050
     Dates: start: 20200216
  5. CARBIDOPA\LEVODOPA [Suspect]
     Active Substance: CARBIDOPA\LEVODOPA
     Dosage: MD: 8 ML?CD: 2.6 ML/HR X HRS
     Route: 050
  6. LEVODOPA [Concomitant]
     Active Substance: LEVODOPA
     Indication: Parkinson^s disease
     Route: 042
     Dates: start: 20181019, end: 20181020
  7. LEVODOPA [Concomitant]
     Active Substance: LEVODOPA
     Route: 042
     Dates: start: 20190405, end: 20190406
  8. LEVODOPA [Concomitant]
     Active Substance: LEVODOPA
     Route: 042
     Dates: start: 20191219, end: 20191220
  9. LEVODOPA [Concomitant]
     Active Substance: LEVODOPA
     Route: 042
     Dates: start: 20200214, end: 20200215
  10. ROTIGOTINE [Concomitant]
     Active Substance: ROTIGOTINE
     Indication: Parkinson^s disease
     Route: 062
     Dates: start: 20180428
  11. DOMPERIDONE [Concomitant]
     Active Substance: DOMPERIDONE
     Indication: Prophylaxis
     Route: 048
  12. DULOXETINE HYDROCHLORIDE [Concomitant]
     Active Substance: DULOXETINE HYDROCHLORIDE
     Indication: Product used for unknown indication
     Route: 048
  13. METHYLCOBALAMIN [Concomitant]
     Active Substance: METHYLCOBALAMIN
     Indication: Product used for unknown indication
     Route: 048
  14. ALPRAZOLAM [Concomitant]
     Active Substance: ALPRAZOLAM
     Indication: Product used for unknown indication
     Route: 048
  15. ESZOPICLONE [Concomitant]
     Active Substance: ESZOPICLONE
     Indication: Product used for unknown indication
     Route: 048
  16. MAGNESIUM OXIDE [Concomitant]
     Active Substance: MAGNESIUM OXIDE
     Indication: Product used for unknown indication
     Route: 048
  17. REBAMIPIDE [Concomitant]
     Active Substance: REBAMIPIDE
     Indication: Prophylaxis
     Route: 047
  18. BRINZOLAMIDE W/TIMOLOL MALEATE [Concomitant]
     Indication: Product used for unknown indication
     Route: 047
  19. BIMATOPROST [Concomitant]
     Active Substance: BIMATOPROST
     Indication: Product used for unknown indication
     Route: 047
  20. GENTAMICIN SULFATE [Concomitant]
     Active Substance: GENTAMICIN SULFATE
     Indication: Prophylaxis
     Dosage: Q.S. AS NEEDED
     Route: 061
     Dates: start: 20180503
  21. TRAMADOL HYDROCHLORIDE AND ACETAMINOPHEN [Concomitant]
     Active Substance: ACETAMINOPHEN\TRAMADOL HYDROCHLORIDE
     Indication: Product used for unknown indication
     Route: 048
     Dates: start: 20180424, end: 20181021
  22. APOMORPHINE HYDROCHLORIDE [Concomitant]
     Active Substance: APOMORPHINE HYDROCHLORIDE
     Indication: Prophylaxis
     Dosage: AT THE TIME OF OFF STATE IN THE NIGHT
     Route: 062
     Dates: end: 20181015
  23. CEFAZOLIN SODIUM [Concomitant]
     Active Substance: CEFAZOLIN SODIUM
     Indication: Prophylaxis
     Route: 042
     Dates: start: 20181019, end: 20181020
  24. CEFAZOLIN SODIUM [Concomitant]
     Active Substance: CEFAZOLIN SODIUM
     Route: 042
     Dates: start: 20190405, end: 20190406
  25. CEFAZOLIN SODIUM [Concomitant]
     Active Substance: CEFAZOLIN SODIUM
     Route: 042
     Dates: start: 20191219, end: 20191220
  26. CEFAZOLIN SODIUM [Concomitant]
     Active Substance: CEFAZOLIN SODIUM
     Route: 042
     Dates: start: 20200214, end: 20200215
  27. HEPARIN CALCIUM [Concomitant]
     Active Substance: HEPARIN CALCIUM
     Indication: Prophylaxis
     Route: 058
     Dates: start: 20200215, end: 20200216
  28. ENOXAPARIN SODIUM [Concomitant]
     Active Substance: ENOXAPARIN SODIUM
     Indication: Prophylaxis
     Route: 058
     Dates: start: 20200216, end: 20200217
  29. BENSERAZIDE HYDROCHLORIDE\LEVODOPA [Concomitant]
     Active Substance: BENSERAZIDE HYDROCHLORIDE\LEVODOPA
     Indication: Parkinson^s disease
     Route: 048

REACTIONS (13)
  - Hospitalisation [Unknown]
  - Deep vein thrombosis [Not Recovered/Not Resolved]
  - Malaise [Unknown]
  - Hypertonic bladder [Not Recovered/Not Resolved]
  - Back pain [Recovered/Resolved]
  - Urticaria [Recovered/Resolved]
  - Anaemia [Recovering/Resolving]
  - Stoma site pain [Recovered/Resolved]
  - Nausea [Recovered/Resolved]
  - Stoma site pain [Recovering/Resolving]
  - Stoma site hypergranulation [Recovering/Resolving]
  - Stoma site erythema [Unknown]
  - Stoma site haemorrhage [Unknown]

NARRATIVE: CASE EVENT DATE: 20180424
